FAERS Safety Report 4616202-5 (Version None)
Quarter: 2005Q1

REPORT INFORMATION
  Report Type: 
  Country: None (occurrence: None)
  Receive Date: 20050321
  Receipt Date: 20050310
  Transmission Date: 20050727
  Serious: Yes (Other)
  Sender: FDA-Public Use
  Company Number: 2005028036

PATIENT
  Sex: Male

DRUGS (2)
  1. LIPITOR [Suspect]
     Indication: ILL-DEFINED DISORDER
     Dosage: 10 MG
  2. NICOTINIC ACID [Suspect]
     Indication: ILL-DEFINED DISORDER
     Dosage: 5000 MG (1 D)

REACTIONS (3)
  - CORONARY ARTERY DISEASE [None]
  - DISEASE PROGRESSION [None]
  - OBSTRUCTION [None]
